FAERS Safety Report 10406192 (Version 1)
Quarter: 2014Q3

REPORT INFORMATION
  Report Type: Other
  Country: FR (occurrence: FR)
  Receive Date: 20140825
  Receipt Date: 20140825
  Transmission Date: 20150326
  Serious: Yes (Hospitalization)
  Sender: FDA-Public Use
  Company Number: FR-MYLAN-2014M1001306

PATIENT

DRUGS (7)
  1. METFORMINE [Concomitant]
     Active Substance: METFORMIN HYDROCHLORIDE
  2. EZETROL [Concomitant]
     Active Substance: EZETIMIBE
  3. FUROSEMIDE. [Concomitant]
     Active Substance: FUROSEMIDE
  4. SOTALOL MYLAN 80 MG, COMPRIM? S?CABLE [Suspect]
     Active Substance: SOTALOL
     Indication: PRODUCT USED FOR UNKNOWN INDICATION
     Dosage: 80 MG, BID
     Route: 048
     Dates: start: 2013, end: 20140523
  5. KARDEGIC [Concomitant]
     Active Substance: ASPIRIN LYSINE
  6. DIFFU K [Concomitant]
     Active Substance: POTASSIUM CHLORIDE
  7. PRADAXA [Concomitant]
     Active Substance: DABIGATRAN ETEXILATE MESYLATE

REACTIONS (4)
  - Bradycardia [Recovered/Resolved]
  - Loss of consciousness [Recovered/Resolved]
  - Chest pain [Recovered/Resolved]
  - Cardiac failure [Recovered/Resolved]

NARRATIVE: CASE EVENT DATE: 20140522
